FAERS Safety Report 5561525-9 (Version None)
Quarter: 2007Q4

REPORT INFORMATION
  Report Type: 
  Country: None (occurrence: None)
  Receive Date: 20071215
  Receipt Date: 20071018
  Transmission Date: 20080405
  Serious: No
  Sender: FDA-Public Use
  Company Number: US-AMGEN-KDL230680

PATIENT
  Sex: Female
  Weight: 36.3 kg

DRUGS (7)
  1. PROCRIT [Suspect]
     Indication: ANAEMIA
     Dates: start: 20070501
  2. ARANESP [Suspect]
  3. LASIX [Concomitant]
  4. ANAGRELIDE HCL [Concomitant]
  5. KLOR-CON [Concomitant]
  6. LEVOTHYROXINE SODIUM [Concomitant]
  7. FENTANYL [Concomitant]
     Route: 062

REACTIONS (11)
  - BONE PAIN [None]
  - COAGULOPATHY [None]
  - CONFUSIONAL STATE [None]
  - CONTUSION [None]
  - DYSPNOEA [None]
  - NECK PAIN [None]
  - PETECHIAE [None]
  - PLATELET COUNT DECREASED [None]
  - RASH [None]
  - SCAR [None]
  - SKIN HAEMORRHAGE [None]
